FAERS Safety Report 15961249 (Version 1)
Quarter: 2019Q1

REPORT INFORMATION
  Report Type: Spontaneous
  Country: US (occurrence: US)
  Receive Date: 20190214
  Receipt Date: 20190214
  Transmission Date: 20190417
  Serious: No
  Sender: FDA-Public Use
  Company Number: US-HORIZON-ACT-0027-2019

PATIENT
  Age: 34 Year
  Sex: Male

DRUGS (1)
  1. ACTIMMUNE [Suspect]
     Active Substance: INTERFERON GAMMA-1B
     Indication: PRODUCT USED FOR UNKNOWN INDICATION
     Dosage: 100 MCG (0.5 ML) ON MONDAYS, WEDNESDAYS, AND FRIDAYS
     Route: 058

REACTIONS (1)
  - Malaise [Unknown]
